FAERS Safety Report 18022966 (Version 2)
Quarter: 2020Q3

REPORT INFORMATION
  Report Type: Spontaneous
  Country: US (occurrence: US)
  Receive Date: 20200714
  Receipt Date: 20200723
  Transmission Date: 20201103
  Serious: Yes (Life-Threatening, Hospitalization)
  Sender: FDA-Public Use
  Company Number: US-TEVA-2020-US-1799939

PATIENT
  Age: 5 Month
  Sex: Male

DRUGS (7)
  1. MORPHINE [Suspect]
     Active Substance: MORPHINE
     Dosage: MULTIPLE BOLUS DOSES OF MORPHINE
     Route: 065
  2. MORPHINE [Suspect]
     Active Substance: MORPHINE
     Indication: ANALGESIC THERAPY
     Dosage: DRIP; MAXIMUM DOSE OF 0.09 MG/KG/HOUR
     Route: 050
  3. RISPERIDONE. [Suspect]
     Active Substance: RISPERIDONE
     Indication: DELIRIUM
     Dosage: AT 0200 HOURS AND ON THE FOLLOWING NIGHT
     Route: 065
  4. LORAZEPAM. [Suspect]
     Active Substance: LORAZEPAM
     Indication: SEDATIVE THERAPY
     Dosage: 2.4 MG/KG DAILY;
     Route: 050
  5. DEXMEDETOMIDINE. [Suspect]
     Active Substance: DEXMEDETOMIDINE
     Indication: SEDATIVE THERAPY
     Dosage: 24 UG/KG DAILY;
     Route: 050
  6. MIDAZOLAM. [Suspect]
     Active Substance: MIDAZOLAM
     Dosage: MULTIPLE BOLUS DOSES OF MIDAZOLAM
     Route: 050
  7. MIDAZOLAM. [Suspect]
     Active Substance: MIDAZOLAM
     Indication: SEDATIVE THERAPY
     Dosage: 1.44 MG/KG DAILY; DRIP
     Route: 050

REACTIONS (2)
  - Delirium [Recovering/Resolving]
  - Off label use [Unknown]
